FAERS Safety Report 10792046 (Version 1)
Quarter: 2015Q1

REPORT INFORMATION
  Report Type: Spontaneous
  Country: GB (occurrence: GB)
  Receive Date: 20150213
  Receipt Date: 20150213
  Transmission Date: 20150721
  Serious: Yes (Other)
  Sender: FDA-Public Use
  Company Number: GB-JNJFOC-20150200376

PATIENT
  Sex: Female

DRUGS (1)
  1. LYRINEL XL [Suspect]
     Active Substance: OXYBUTYNIN
     Indication: POLLAKIURIA
     Route: 048

REACTIONS (2)
  - Product use issue [Unknown]
  - Tonsillitis [Unknown]
